FAERS Safety Report 25884322 (Version 3)
Quarter: 2025Q4

REPORT INFORMATION
  Report Type: Report from Study
  Country: EU (occurrence: EU)
  Receive Date: 20251006
  Receipt Date: 20251214
  Transmission Date: 20260118
  Serious: Yes (Other)
  Sender: ABBVIE
  Company Number: EU-ABBVIE-6358465

PATIENT
  Age: 76 Year
  Sex: Female
  Weight: 95 kg

DRUGS (2)
  1. CARBIDOPA\LEVODOPA [Suspect]
     Active Substance: CARBIDOPA\LEVODOPA
     Indication: Parkinson^s disease
     Route: 050
     Dates: start: 20250123, end: 2025
  2. CARBIDOPA\LEVODOPA [Suspect]
     Active Substance: CARBIDOPA\LEVODOPA
     Dosage: INCREASED CONTINUOUS DOSE AND EXTRA DOSE
     Route: 050
     Dates: start: 2025

REACTIONS (6)
  - Uterine neoplasm [Not Recovered/Not Resolved]
  - Bradykinesia [Recovered/Resolved]
  - Therapeutic product effect incomplete [Unknown]
  - Musculoskeletal stiffness [Recovered/Resolved]
  - Vaginal haemorrhage [Not Recovered/Not Resolved]
  - Cervical cyst [Not Recovered/Not Resolved]

NARRATIVE: CASE EVENT DATE: 20250101
